FAERS Safety Report 5484726-7 (Version None)
Quarter: 2007Q4

REPORT INFORMATION
  Report Type: 
  Country: None (occurrence: None)
  Receive Date: 20071010
  Receipt Date: 20070924
  Transmission Date: 20080405
  Serious: Yes (Hospitalization)
  Sender: FDA-Public Use
  Company Number: 8026019

PATIENT
  Age: 62 Year
  Sex: Male
  Weight: 70 kg

DRUGS (4)
  1. KEPPRA [Suspect]
     Dosage: PO
     Route: 048
     Dates: start: 20070804
  2. LEVOPROMAZIN [Suspect]
     Dosage: 150 MG /D PO
     Route: 048
     Dates: start: 20070804
  3. NEURAPAS [Suspect]
     Dosage: 60 MG /D PO
     Route: 048
     Dates: start: 20070804
  4. PERAZIN [Suspect]
     Dosage: 20 MG /D PO
     Route: 048
     Dates: start: 20070804

REACTIONS (3)
  - ACCIDENTAL EXPOSURE [None]
  - BRADYCARDIA [None]
  - HYPOTENSION [None]
